FAERS Safety Report 6869988-3 (Version None)
Quarter: 2010Q3

REPORT INFORMATION
  Report Type: 
  Country: None (occurrence: None)
  Receive Date: 20100722
  Receipt Date: 20100712
  Transmission Date: 20110219
  Serious: Yes (Hospitalization)
  Sender: FDA-Public Use
  Company Number: JP-PFIZER INC-2010086226

PATIENT
  Age: 33 Year
  Sex: Female
  Weight: 49 kg

DRUGS (4)
  1. ZITHROMAC SR [Suspect]
     Indication: PHARYNGITIS
     Dosage: 2 G, SINGLE
     Route: 048
     Dates: start: 20100708, end: 20100708
  2. MUCOSTA [Suspect]
     Indication: PHARYNGITIS
     Dosage: 100 MG, 3X/DAY
     Route: 048
     Dates: start: 20100708, end: 20100709
  3. PREDONINE [Suspect]
     Indication: PHARYNGITIS
     Dosage: 10 MG, 3X/DAY
     Route: 048
     Dates: start: 20100708, end: 20100709
  4. AZUNOL [Concomitant]
     Indication: PHARYNGITIS

REACTIONS (2)
  - COLITIS ISCHAEMIC [None]
  - ENTEROCOLITIS [None]
